FAERS Safety Report 7339342-9 (Version None)
Quarter: 2011Q1

REPORT INFORMATION
  Report Type: 
  Country: None (occurrence: None)
  Receive Date: 20110308
  Receipt Date: 20110302
  Transmission Date: 20110831
  Serious: Yes (Other)
  Sender: FDA-Public Use
  Company Number: US-PFIZER INC-2011020721

PATIENT
  Sex: Female

DRUGS (9)
  1. GEODON [Suspect]
     Dosage: 50 MG, UNK
     Route: 048
  2. ALPRAZOLAM [Concomitant]
     Indication: WITHDRAWAL SYNDROME
     Dosage: 1 MG, 3X/DAY
     Dates: start: 20100601
  3. CITALOPRAM [Concomitant]
     Indication: WITHDRAWAL SYNDROME
     Dosage: 30 MG, 1X/DAY
     Dates: start: 20100203
  4. BENZTROPEINE [Concomitant]
     Dosage: 1 MG, 3X/DAY
     Dates: start: 20101101
  5. GEODON [Suspect]
     Dosage: 10 MG, UNK
     Route: 048
     Dates: end: 20110125
  6. GEODON [Suspect]
     Indication: DEPRESSION
     Dosage: 60 MG, UNK
     Route: 048
     Dates: start: 20100801
  7. CYMBALTA [Concomitant]
     Indication: DEPRESSION
     Dosage: 90 MG, UNK
     Dates: start: 20100601
  8. CYMBALTA [Concomitant]
     Indication: ANXIETY
  9. GEODON [Suspect]
     Dosage: 20 MG, UNK
     Route: 048

REACTIONS (8)
  - ANXIETY [None]
  - DISTURBANCE IN ATTENTION [None]
  - AKATHISIA [None]
  - DRUG WITHDRAWAL SYNDROME [None]
  - AGITATION [None]
  - INSOMNIA [None]
  - DIARRHOEA [None]
  - DECREASED APPETITE [None]
